FAERS Safety Report 8024930-7 (Version None)
Quarter: 2012Q1

REPORT INFORMATION
  Report Type: 
  Country: None (occurrence: None)
  Receive Date: 20120103
  Receipt Date: 20111219
  Transmission Date: 20120608
  Serious: Yes (Hospitalization, Other)
  Sender: FDA-Public Use
  Company Number: ACO_28305_2011

PATIENT
  Age: 83 Year
  Sex: Male

DRUGS (4)
  1. DELORAZEPAM (DELORAZEPAM) [Suspect]
     Indication: INTENTIONAL OVERDOSE
     Dosage: 30 DRP, ORAL 15 DRP
     Route: 048
     Dates: start: 20111104, end: 20111104
  2. DELORAZEPAM (DELORAZEPAM) [Suspect]
     Indication: INSOMNIA
     Dosage: 30 DRP, ORAL 15 DRP
     Route: 048
     Dates: start: 20111104, end: 20111104
  3. VALDOXAN (AGOMELATINE) [Suspect]
     Indication: INTENTIONAL OVERDOSE
     Dosage: 25 NG, ONE POSOLOGICAL UNIT, ORAL
     Route: 048
     Dates: start: 20111104, end: 20111104
  4. TIZANIDINE HYDROCHLORIDE [Suspect]
     Indication: INTENTIONAL OVERDOSE
     Dosage: 3 POSOLOGIC UNITS
     Dates: start: 20111104, end: 20111104

REACTIONS (7)
  - HYPOTENSION [None]
  - BRADYKINESIA [None]
  - BRADYCARDIA [None]
  - SOPOR [None]
  - OVERDOSE [None]
  - DRY MOUTH [None]
  - BRADYPHRENIA [None]
